FAERS Safety Report 7490024 (Version 7)
Quarter: 2014Q3

REPORT INFORMATION
  Report Type: Report from Study
  Country: US (occurrence: US)
  Receive Date: 20100720
  Receipt Date: 20140825
  Transmission Date: 20150326
  Serious: Yes (Other)
  Sender: FDA-Public Use
  Company Number: US-BIOGENIDEC-2010BI023295

PATIENT
  Age: 52 Year
  Sex: Female
  Weight: 96 kg

DRUGS (8)
  1. IVIG [Concomitant]
     Active Substance: HUMAN IMMUNOGLOBULIN G
     Indication: IMMUNOSUPPRESSION
     Route: 042
     Dates: start: 2000
  2. THEOPHYLLINE [Concomitant]
     Active Substance: THEOPHYLLINE
     Indication: BRONCHITIS CHRONIC
  3. XANAX [Concomitant]
     Active Substance: ALPRAZOLAM
     Indication: ANXIETY
     Dates: start: 2002
  4. OXYBUTYNIN [Concomitant]
     Active Substance: OXYBUTYNIN
     Indication: URINARY INCONTINENCE
  5. PAXIL [Concomitant]
     Active Substance: PAROXETINE HYDROCHLORIDE
     Indication: ANXIETY
  6. DARVOCET [Concomitant]
     Active Substance: ACETAMINOPHEN\PROPOXYPHENE HYDROCHLORIDE
     Indication: PAIN
  7. AVONEX [Suspect]
     Active Substance: INTERFERON BETA-1A
     Indication: MULTIPLE SCLEROSIS
     Route: 030
     Dates: start: 20090324
  8. BACTRIM [Concomitant]
     Active Substance: SULFAMETHOXAZOLE\TRIMETHOPRIM
     Indication: URINARY INCONTINENCE
     Route: 048
     Dates: start: 1995

REACTIONS (13)
  - Generalised tonic-clonic seizure [Recovered/Resolved]
  - Thermal burn [Recovered/Resolved]
  - Kidney infection [Recovered/Resolved]
  - Dyskinesia [Recovered/Resolved]
  - Tremor [Recovered/Resolved]
  - General symptom [Recovered/Resolved]
  - Ill-defined disorder [Recovered/Resolved]
  - Pyrexia [Recovered/Resolved]
  - Muscle twitching [Recovered/Resolved]
  - Postictal headache [Recovered/Resolved]
  - Disorientation [Recovered/Resolved]
  - Urinary tract infection [Not Recovered/Not Resolved]
  - Bladder disorder [Recovered/Resolved]

NARRATIVE: CASE EVENT DATE: 2009
